FAERS Safety Report 21414344 (Version 1)
Quarter: 2022Q4

REPORT INFORMATION
  Report Type: Spontaneous
  Country: US (occurrence: US)
  Receive Date: 20221006
  Receipt Date: 20221006
  Transmission Date: 20230112
  Serious: No
  Sender: FDA-Public Use
  Company Number: US-ALLERGAN-2227111US

PATIENT
  Sex: Female

DRUGS (2)
  1. QULIPTA [Suspect]
     Active Substance: ATOGEPANT
     Indication: Product used for unknown indication
     Dosage: UNK UNK, Q2WEEKS
  2. QULIPTA [Suspect]
     Active Substance: ATOGEPANT
     Dosage: UNK UNK, FOR 2-1/2 WEEKS

REACTIONS (1)
  - COVID-19 [Not Recovered/Not Resolved]
